FAERS Safety Report 7592762-X (Version None)
Quarter: 2011Q3

REPORT INFORMATION
  Report Type: 
  Country: None (occurrence: None)
  Receive Date: 20110706
  Receipt Date: 20110630
  Transmission Date: 20111222
  Serious: No
  Sender: FDA-Public Use
  Company Number: US-PFIZER INC-2011147634

PATIENT
  Age: 75 Year
  Sex: Female
  Weight: 79.365 kg

DRUGS (2)
  1. BUPROPION HYDROCHLORIDE [Concomitant]
     Indication: DEPRESSION
     Dosage: 300 MG, DAILY
     Route: 048
  2. PRISTIQ [Suspect]
     Indication: DEPRESSION
     Dosage: 100 MG, DAILY
     Route: 048
     Dates: start: 20110101

REACTIONS (1)
  - INTRAOCULAR PRESSURE INCREASED [None]
